FAERS Safety Report 4447903-X (Version None)
Quarter: 2004Q3

REPORT INFORMATION
  Report Type: 
  Country: None (occurrence: None)
  Receive Date: 20040729
  Receipt Date: 20040301
  Transmission Date: 20050211
  Serious: Yes (Hospitalization)
  Sender: FDA-Public Use
  Company Number: SAGL-ZLB/04/03/FRA

PATIENT
  Age: 62 Year
  Sex: Female

DRUGS (2)
  1. SANDOGLOBULIN [Suspect]
     Indication: BONE MARROW TRANSPLANT
     Dosage: 30 G, I.V.
     Route: 042
     Dates: start: 20040127, end: 20040127
  2. SANDOGLOBULIN [Suspect]

REACTIONS (1)
  - CHILLS [None]
